FAERS Safety Report 15593318 (Version 1)
Quarter: 2018Q4

REPORT INFORMATION
  Report Type: Spontaneous
  Country: US (occurrence: US)
  Receive Date: 20181107
  Receipt Date: 20181107
  Transmission Date: 20190205
  Serious: Yes (Disabling, Other)
  Sender: FDA-Public Use
  Company Number: None

PATIENT
  Age: 40 Year
  Sex: Female
  Weight: 78.75 kg

DRUGS (4)
  1. VITAMIN D [Concomitant]
     Active Substance: CHOLECALCIFEROL
  2. SYNTHROID [Concomitant]
     Active Substance: LEVOTHYROXINE SODIUM
  3. DULOXETINE HCL 20 MG EC CAP [Suspect]
     Active Substance: DULOXETINE HYDROCHLORIDE
     Indication: FIBROMYALGIA
     Dosage: ?          QUANTITY:1 CAPSULE(S);?
     Route: 048
     Dates: start: 20171101, end: 20181030
  4. VITAMIN B12 [Concomitant]
     Active Substance: CYANOCOBALAMIN

REACTIONS (17)
  - Haemorrhoidal haemorrhage [None]
  - Rectal discharge [None]
  - Impaired work ability [None]
  - Loss of personal independence in daily activities [None]
  - Crying [None]
  - Memory impairment [None]
  - Withdrawal syndrome [None]
  - Disturbance in attention [None]
  - Anxiety [None]
  - Dizziness [None]
  - Migraine [None]
  - Nightmare [None]
  - Diarrhoea [None]
  - Fall [None]
  - Arthralgia [None]
  - Insomnia [None]
  - Pain [None]

NARRATIVE: CASE EVENT DATE: 20181101
